FAERS Safety Report 4759814-0 (Version None)
Quarter: 2005Q3

REPORT INFORMATION
  Report Type: 
  Country: None (occurrence: None)
  Receive Date: 20050831
  Receipt Date: 20050831
  Transmission Date: 20060218
  Serious: No
  Sender: FDA-Public Use
  Company Number: None

PATIENT
  Age: 63 Year
  Sex: Female
  Weight: 73.9363 kg

DRUGS (1)
  1. METRONIDAZOLE 750MG [Suspect]
     Indication: BLASTOCYSTIS INFECTION
     Dosage: 750MG  TID PO
     Route: 048
     Dates: start: 20050618, end: 20050621

REACTIONS (3)
  - NEUROPATHY PERIPHERAL [None]
  - PARAESTHESIA [None]
  - POLYNEUROPATHY [None]
